FAERS Safety Report 12967733 (Version 1)
Quarter: 2016Q4

REPORT INFORMATION
  Report Type: Spontaneous
  Country: US (occurrence: US)
  Receive Date: 20161123
  Receipt Date: 20161123
  Transmission Date: 20170207
  Serious: No
  Sender: FDA-Public Use
  Company Number: US-TEVA-627965USA

PATIENT
  Age: 66 Year
  Sex: Female
  Weight: 52.21 kg

DRUGS (1)
  1. MUPIROCIN. [Suspect]
     Active Substance: MUPIROCIN
     Indication: STAPHYLOCOCCAL INFECTION
     Route: 045
     Dates: start: 20160115

REACTIONS (2)
  - Incorrect route of drug administration [Unknown]
  - Erythema [Unknown]

NARRATIVE: CASE EVENT DATE: 201601
